FAERS Safety Report 9995302 (Version 1)
Quarter: 2014Q1

REPORT INFORMATION
  Report Type: Spontaneous
  Country: JP (occurrence: JP)
  Receive Date: 20140311
  Receipt Date: 20140311
  Transmission Date: 20141002
  Serious: Yes (Other)
  Sender: FDA-Public Use
  Company Number: JP-ASTELLAS-2014JP001903

PATIENT
  Sex: 0

DRUGS (8)
  1. PROGRAF [Suspect]
     Indication: PROPHYLAXIS AGAINST GRAFT VERSUS HOST DISEASE
     Route: 041
  2. FUNGUARD [Concomitant]
     Indication: ANTIFUNGAL PROPHYLAXIS
     Dosage: 2 MG/KG, UID/QD
     Route: 041
  3. CYCLOPHOSPHAMIDE [Concomitant]
     Indication: BONE MARROW CONDITIONING REGIMEN
     Route: 065
  4. ANTIBIOTICS [Concomitant]
     Indication: ANTIBIOTIC THERAPY
     Route: 048
  5. ACYCLOVIR                          /00587301/ [Concomitant]
     Route: 042
  6. GAMMA-GLOBULIN [Concomitant]
     Route: 042
  7. GAMMA-GLOBULIN [Concomitant]
     Dosage: UNK
     Route: 042
  8. SULFAMETHOXAZOLE W/TRIMETHOPRIM [Concomitant]
     Indication: ANTIFUNGAL PROPHYLAXIS
     Route: 065

REACTIONS (2)
  - Drug ineffective [Unknown]
  - Acute graft versus host disease [Recovered/Resolved]
